FAERS Safety Report 8210369-8 (Version None)
Quarter: 2012Q1

REPORT INFORMATION
  Report Type: 
  Country: None (occurrence: None)
  Receive Date: 20120314
  Receipt Date: 20111025
  Transmission Date: 20120608
  Serious: No
  Sender: FDA-Public Use
  Company Number: US-ASTRAZENECA-2011SE64431

PATIENT
  Age: 52 Year
  Sex: Female

DRUGS (6)
  1. LEVOTHYROXINE SODIUM [Concomitant]
  2. TOPROL-XL [Suspect]
     Route: 048
  3. TOPROL-XL [Suspect]
     Route: 048
  4. METOPROLOL SUCCINATE [Concomitant]
  5. TOPROL-XL [Suspect]
     Indication: PALPITATIONS
     Route: 048
  6. TOPROL-XL [Suspect]
     Route: 048

REACTIONS (7)
  - HYPERTENSION [None]
  - PALPITATIONS [None]
  - INCORRECT DOSE ADMINISTERED [None]
  - PULSE PRESSURE INCREASED [None]
  - MALAISE [None]
  - INSOMNIA [None]
  - NO THERAPEUTIC RESPONSE [None]
